FAERS Safety Report 15769896 (Version 1)
Quarter: 2018Q4

REPORT INFORMATION
  Report Type: Spontaneous
  Country: US (occurrence: US)
  Receive Date: 20181228
  Receipt Date: 20181228
  Transmission Date: 20190205
  Serious: Yes (Other)
  Sender: FDA-Public Use
  Company Number: US-CIPLA LTD.-2018US20948

PATIENT

DRUGS (2)
  1. LAMOTRIGINE. [Suspect]
     Active Substance: LAMOTRIGINE
     Dosage: 150 MG, UNK, CIPLA MANUFACTURED
     Route: 048
  2. LAMOTRIGINE. [Suspect]
     Active Substance: LAMOTRIGINE
     Indication: PRODUCT USED FOR UNKNOWN INDICATION
     Dosage: 150 MG, BID, TEVA MANUFACTURED
     Route: 065

REACTIONS (6)
  - Product substitution issue [Unknown]
  - Somnolence [Unknown]
  - Headache [Unknown]
  - Ataxia [Unknown]
  - Slow speech [Unknown]
  - Nausea [Unknown]
